FAERS Safety Report 11774504 (Version 1)
Quarter: 2015Q4

REPORT INFORMATION
  Report Type: Spontaneous
  Country: US (occurrence: US)
  Receive Date: 20151124
  Receipt Date: 20151124
  Transmission Date: 20160304
  Serious: Yes (Other)
  Sender: FDA-Public Use
  Company Number: US-INCYTE CORPORATION-2015IN006134

PATIENT
  Age: 65 Year
  Sex: Male

DRUGS (6)
  1. LENALIDOMIDE [Concomitant]
     Active Substance: LENALIDOMIDE
     Indication: HAEMANGIOMA
     Dosage: 10 MG, UNK
     Route: 065
  2. LENALIDOMIDE [Concomitant]
     Active Substance: LENALIDOMIDE
     Dosage: 5 MG, QD
     Route: 065
     Dates: start: 201110
  3. HYDROXYUREA. [Concomitant]
     Active Substance: HYDROXYUREA
     Indication: POLYCYTHAEMIA VERA
     Dosage: 1500 MG, QD
     Route: 065
     Dates: start: 201005
  4. JAKAFI [Suspect]
     Active Substance: RUXOLITINIB
     Indication: HAEMANGIOMA
     Route: 065
  5. HYDROXYUREA. [Concomitant]
     Active Substance: HYDROXYUREA
     Dosage: 500 MG, QD
     Route: 065
     Dates: start: 201110
  6. DOXYCYCLINE. [Concomitant]
     Active Substance: DOXYCYCLINE
     Indication: POLYCYTHAEMIA VERA
     Dosage: 200 MG, QD
     Route: 065
     Dates: start: 201010

REACTIONS (1)
  - Respiratory disorder [Recovering/Resolving]
